FAERS Safety Report 9148481 (Version 2)
Quarter: 2013Q1

REPORT INFORMATION
  Report Type: Spontaneous
  Country: DE (occurrence: DE)
  Receive Date: 20130308
  Receipt Date: 20130320
  Transmission Date: 20140127
  Serious: Yes (Other)
  Sender: FDA-Public Use
  Company Number: DE-JNJFOC-20130216734

PATIENT
  Age: 47 Year
  Sex: Female
  Weight: 165 kg

DRUGS (6)
  1. XARELTO [Suspect]
     Indication: EMBOLISM VENOUS
     Route: 048
     Dates: start: 201207, end: 20130217
  2. XARELTO [Suspect]
     Indication: EMBOLISM VENOUS
     Dosage: PLANNED TO TAKE 15MG 2 TIMES A DAY FOR 3 WEEKS AND 20 MG ONCE A DAY FOR 6 MONTHS
     Route: 048
     Dates: start: 20130218
  3. XARELTO [Suspect]
     Indication: EMBOLISM VENOUS
     Route: 048
     Dates: start: 201207
  4. XARELTO [Suspect]
     Indication: DEEP VEIN THROMBOSIS
     Dosage: PLANNED TO TAKE 15MG 2 TIMES A DAY FOR 3 WEEKS AND 20 MG ONCE A DAY FOR 6 MONTHS
     Route: 048
     Dates: start: 20130218
  5. XARELTO [Suspect]
     Indication: DEEP VEIN THROMBOSIS
     Route: 048
     Dates: start: 201207
  6. XARELTO [Suspect]
     Indication: DEEP VEIN THROMBOSIS
     Route: 048
     Dates: start: 201207, end: 20130217

REACTIONS (2)
  - Deep vein thrombosis [Not Recovered/Not Resolved]
  - Drug ineffective [Unknown]
